FAERS Safety Report 11074819 (Version 1)
Quarter: 2015Q2

REPORT INFORMATION
  Report Type: Spontaneous
  Country: AT (occurrence: None)
  Receive Date: 20150427
  Receipt Date: 20150427
  Transmission Date: 20150821
  Serious: Yes (Hospitalization)
  Sender: FDA-Public Use
  Company Number: IPC201504-000222

PATIENT
  Age: 23 Month
  Sex: Male

DRUGS (3)
  1. RAMIPRIL (RAMIPRIL) (RAMIPRIL) [Suspect]
     Active Substance: RAMIPRIL
     Indication: HYPERTENSION
  2. ATENOLOL (ATENOLOL) (ATENOLOL) [Suspect]
     Active Substance: ATENOLOL
     Indication: HYPERTENSION
  3. NIFEDIPINE (NIFEDIPINE) (NIFEDIPINE) [Suspect]
     Active Substance: NIFEDIPINE
     Indication: HYPERTENSION

REACTIONS (3)
  - Optic ischaemic neuropathy [None]
  - Blood pressure decreased [None]
  - Dehydration [None]
